FAERS Safety Report 8843818 (Version 3)
Quarter: 2015Q2

REPORT INFORMATION
  Report Type: Spontaneous
  Country: US (occurrence: US)
  Receive Date: 20121016
  Receipt Date: 20150626
  Transmission Date: 20150821
  Serious: Yes (Disabling, Other)
  Sender: FDA-Public Use
  Company Number: US-009507513-1210USA004477

PATIENT
  Sex: Female
  Weight: 68.27 kg

DRUGS (8)
  1. FOSAMAX PLUS D [Suspect]
     Active Substance: ALENDRONATE SODIUM\CHOLECALCIFEROL
     Indication: OSTEOPOROSIS
     Dosage: 70MG-2800IU, QW
     Route: 048
     Dates: start: 20071024, end: 20100318
  2. FOSAMAX [Suspect]
     Active Substance: ALENDRONATE SODIUM
     Indication: OSTEOPOROSIS
     Dosage: 5 MG, QAM
     Route: 048
     Dates: start: 20000410, end: 20070820
  3. HORMONES (UNSPECIFIED) [Concomitant]
     Active Substance: UNSPECIFIED INGREDIENT
     Dosage: UNK
     Dates: start: 1970, end: 2011
  4. FOSAMAX [Suspect]
     Active Substance: ALENDRONATE SODIUM
     Indication: OSTEOPOROSIS
     Dosage: UNK
     Route: 048
     Dates: start: 2000, end: 2010
  5. LEVOTHYROXINE SODIUM. [Concomitant]
     Active Substance: LEVOTHYROXINE SODIUM
     Indication: HYPOTHYROIDISM
     Dosage: UNK
     Dates: start: 1990
  6. FOSAMAX [Suspect]
     Active Substance: ALENDRONATE SODIUM
     Dosage: 10 MG, UNK
     Route: 048
     Dates: start: 20001012, end: 20070820
  7. FOSAMAX [Suspect]
     Active Substance: ALENDRONATE SODIUM
     Dosage: 70 MG, QW
     Route: 048
     Dates: start: 20020617, end: 20070820
  8. ALENDRONATE SODIUM. [Suspect]
     Active Substance: ALENDRONATE SODIUM
     Indication: OSTEOPOROSIS
     Dosage: 70 MG, UNK
     Dates: start: 20100804, end: 20101218

REACTIONS (10)
  - Low turnover osteopathy [Not Recovered/Not Resolved]
  - Tibia fracture [Unknown]
  - Femur fracture [Not Recovered/Not Resolved]
  - Depression [Unknown]
  - Osteopetrosis [Unknown]
  - Ankle fracture [Unknown]
  - Foot fracture [Unknown]
  - Varicose vein [Unknown]
  - Exostosis [Unknown]
  - Bone disorder [Unknown]

NARRATIVE: CASE EVENT DATE: 2001
